FAERS Safety Report 8273802-1 (Version None)
Quarter: 2012Q2

REPORT INFORMATION
  Report Type: 
  Country: None (occurrence: None)
  Receive Date: 20120411
  Receipt Date: 20120406
  Transmission Date: 20120825
  Serious: Yes (Hospitalization, Disabling)
  Sender: FDA-Public Use
  Company Number: PHEH2012US007469

PATIENT
  Sex: Male
  Weight: 77.098 kg

DRUGS (2)
  1. GILENYA [Suspect]
     Dosage: 0.5 MG, QD
     Route: 048
  2. GILENYA [Suspect]
     Indication: MULTIPLE SCLEROSIS
     Dosage: 0.5 MG, QD
     Route: 048
     Dates: start: 20110801, end: 20120326

REACTIONS (5)
  - GAIT DISTURBANCE [None]
  - SWELLING [None]
  - MULTIPLE SCLEROSIS RELAPSE [None]
  - STRESS [None]
  - THERAPY CESSATION [None]
